FAERS Safety Report 20025273 (Version 1)
Quarter: 2021Q4

REPORT INFORMATION
  Report Type: Report from Study
  Country: US (occurrence: US)
  Receive Date: 20211102
  Receipt Date: 20211102
  Transmission Date: 20220304
  Serious: Yes (Other)
  Sender: FDA-Public Use
  Company Number: US-JAZZ-2021-US-010619

PATIENT
  Sex: Male

DRUGS (5)
  1. XYREM [Suspect]
     Active Substance: SODIUM OXYBATE
     Indication: Narcolepsy
     Dosage: 2.5 GRAM, BID
     Route: 048
     Dates: start: 201505, end: 201506
  2. XYREM [Suspect]
     Active Substance: SODIUM OXYBATE
     Dosage: DOSE ADJUSTMENT
     Route: 048
     Dates: start: 201506, end: 201702
  3. XYREM [Suspect]
     Active Substance: SODIUM OXYBATE
     Dosage: 5 GRAM, FIRST DOSE
     Route: 048
     Dates: start: 201702
  4. XYREM [Suspect]
     Active Substance: SODIUM OXYBATE
     Dosage: 4 GRAM, SECOND DOSE
     Route: 048
     Dates: start: 201702
  5. CLINDAMYCIN [Suspect]
     Active Substance: CLINDAMYCIN
     Indication: Product used for unknown indication

REACTIONS (9)
  - Vitamin B1 deficiency [Recovering/Resolving]
  - Throat irritation [Recovering/Resolving]
  - Nasal septum deviation [Not Recovered/Not Resolved]
  - Abdominal discomfort [Recovering/Resolving]
  - Medical procedure [Unknown]
  - Sinusitis [Not Recovered/Not Resolved]
  - Gastrointestinal polyp [Unknown]
  - Gastrointestinal polyp haemorrhage [Unknown]
  - Haemoglobin decreased [Unknown]
